FAERS Safety Report 10182481 (Version 2)
Quarter: 2014Q2

REPORT INFORMATION
  Report Type: Spontaneous
  Country: IT (occurrence: IT)
  Receive Date: 20140520
  Receipt Date: 20140522
  Transmission Date: 20141212
  Serious: Yes (Hospitalization)
  Sender: FDA-Public Use
  Company Number: IT-JNJFOC-20140507558

PATIENT
  Age: 43 Year
  Sex: Female
  Weight: 95 kg

DRUGS (6)
  1. SIMPONI [Suspect]
     Indication: RHEUMATOID ARTHRITIS
     Route: 058
     Dates: start: 20140301, end: 20140410
  2. CARDICOR [Concomitant]
     Route: 048
     Dates: start: 20100101, end: 20140410
  3. TRIATEC [Concomitant]
     Route: 048
     Dates: start: 20100101, end: 20140410
  4. TRIATEC [Concomitant]
     Route: 048
     Dates: start: 20100101, end: 20140410
  5. HUMALOG [Concomitant]
     Route: 058
     Dates: start: 20100101, end: 20140410
  6. LANTUS [Concomitant]
     Dosage: 100 IU/ML , 1 DOSE
     Route: 058
     Dates: start: 20100101, end: 20140410

REACTIONS (1)
  - Bronchopneumonia [Recovered/Resolved]
